FAERS Safety Report 22911666 (Version 2)
Quarter: 2024Q1

REPORT INFORMATION
  Report Type: Other
  Country: US (occurrence: None)
  Receive Date: 20230906
  Receipt Date: 20240319
  Transmission Date: 20240410
  Serious: No
  Sender: FDA-Public Use
  Company Number: US-ROCHE-3415212

PATIENT
  Age: 33 Year
  Sex: Female
  Weight: 73.094 kg

DRUGS (1)
  1. OCREVUS [Suspect]
     Active Substance: OCRELIZUMAB
     Indication: Relapsing multiple sclerosis
     Dosage: 600 MG EVERY 6 MONTHS
     Route: 042

REACTIONS (17)
  - Tremor [Unknown]
  - Hypoaesthesia [Unknown]
  - Limb discomfort [Unknown]
  - Micturition urgency [Unknown]
  - Headache [Unknown]
  - Head discomfort [Unknown]
  - Multiple sclerosis [Unknown]
  - Throat irritation [Unknown]
  - COVID-19 [Unknown]
  - Neck pain [Unknown]
  - Optic neuropathy [Unknown]
  - Dysaesthesia [Unknown]
  - Vitamin D deficiency [Unknown]
  - Lhermitte^s sign [Unknown]
  - Persistent depressive disorder [Not Recovered/Not Resolved]
  - JC polyomavirus test positive [Unknown]
  - Drug intolerance [Unknown]
